FAERS Safety Report 6035583-1 (Version None)
Quarter: 2009Q1

REPORT INFORMATION
  Report Type: 
  Country: None (occurrence: None)
  Receive Date: 20090113
  Receipt Date: 20090105
  Transmission Date: 20090719
  Serious: Yes (Hospitalization)
  Sender: FDA-Public Use
  Company Number: CA-BAYER-200822420NA

PATIENT
  Age: 37 Year
  Sex: Female

DRUGS (3)
  1. MIRENA [Suspect]
     Indication: MENORRHAGIA
     Route: 015
     Dates: start: 20080228
  2. WARFARIN [Concomitant]
     Indication: THROMBOSIS
  3. ADALAT CC [Concomitant]
     Indication: RAYNAUD'S PHENOMENON
     Route: 048

REACTIONS (6)
  - INSOMNIA [None]
  - MUSCULOSKELETAL CHEST PAIN [None]
  - OEDEMA PERIPHERAL [None]
  - PAIN [None]
  - PULMONARY OEDEMA [None]
  - THROMBOSIS [None]
